FAERS Safety Report 13350334 (Version 1)
Quarter: 2017Q1

REPORT INFORMATION
  Report Type: Spontaneous
  Country: US (occurrence: US)
  Receive Date: 20170317
  Receipt Date: 20170317
  Transmission Date: 20170429
  Serious: No
  Sender: FDA-Public Use
  Company Number: None

PATIENT
  Sex: Female
  Weight: 58.02 kg

DRUGS (1)
  1. QUETIAPINE. [Suspect]
     Active Substance: QUETIAPINE
     Dosage: 200MG ONE PO Q DAY
     Route: 048

REACTIONS (4)
  - Product substitution issue [None]
  - Somnolence [None]
  - Drug effect variable [None]
  - Insomnia [None]
